FAERS Safety Report 10579655 (Version 1)
Quarter: 2014Q4

REPORT INFORMATION
  Report Type: Spontaneous
  Country: US (occurrence: US)
  Receive Date: 20141112
  Receipt Date: 20141112
  Transmission Date: 20150529
  Serious: No
  Sender: FDA-Public Use
  Company Number: US-MALLINCKRODT-T201305385

PATIENT
  Age: 24 Year
  Sex: Female
  Weight: 92 kg

DRUGS (2)
  1. OFIRMEV [Suspect]
     Active Substance: ACETAMINOPHEN
     Indication: PAIN
     Dosage: DOSE UNIT:
     Dates: start: 20131112
  2. OFIRMEV [Suspect]
     Active Substance: ACETAMINOPHEN
     Dosage: DOSE UNIT:
     Dates: start: 20131112

REACTIONS (1)
  - Drug administration error [Unknown]

NARRATIVE: CASE EVENT DATE: 20131112
